FAERS Safety Report 6254080-1 (Version None)
Quarter: 2009Q3

REPORT INFORMATION
  Report Type: 
  Country: None (occurrence: None)
  Receive Date: 20090702
  Receipt Date: 20090624
  Transmission Date: 20100115
  Serious: Yes (Other)
  Sender: FDA-Public Use
  Company Number: JP-ASTRAZENECA-2009SE03468

PATIENT
  Age: 77 Year
  Sex: Male

DRUGS (3)
  1. MARCAINE [Suspect]
     Indication: SPINAL ANAESTHESIA
     Route: 029
     Dates: start: 20090624, end: 20090624
  2. XYLOCAINE [Suspect]
     Indication: LOCAL ANAESTHESIA
     Dosage: CONCENTRATION UNKNOWN
     Route: 065
     Dates: start: 20090624, end: 20090624
  3. CEFAMEZIN [Suspect]
     Route: 042
     Dates: start: 20090624, end: 20090624

REACTIONS (1)
  - ANAPHYLACTIC SHOCK [None]
